FAERS Safety Report 20997211 (Version 5)
Quarter: 2022Q4

REPORT INFORMATION
  Report Type: Spontaneous
  Country: FR (occurrence: FR)
  Receive Date: 20220623
  Receipt Date: 20221026
  Transmission Date: 20230113
  Serious: Yes (Death, Other)
  Sender: FDA-Public Use
  Company Number: FR-GILEAD-2022-0581860

PATIENT
  Age: 50 Year
  Sex: Female

DRUGS (20)
  1. RITONAVIR [Suspect]
     Active Substance: RITONAVIR
     Indication: HIV-2 infection
     Route: 065
     Dates: start: 20070806, end: 20120522
  2. RITONAVIR [Suspect]
     Active Substance: RITONAVIR
     Indication: HIV-2 infection
     Dosage: LAST ADMIN DATE SEP 2012
     Route: 065
     Dates: start: 20120702
  3. KIVEXA [Suspect]
     Active Substance: ABACAVIR SULFATE\LAMIVUDINE
     Indication: HIV-2 infection
     Dosage: UNK UNK, QD
     Route: 065
     Dates: start: 20120522, end: 20160909
  4. DARUNAVIR [Suspect]
     Active Substance: DARUNAVIR
     Indication: HIV-2 infection
     Route: 065
     Dates: start: 20070809, end: 20111212
  5. EMTRIVA [Suspect]
     Active Substance: EMTRICITABINE
     Indication: HIV-2 infection
     Dosage: 1 DF, QD (UNK, QD)
     Route: 065
     Dates: start: 20060627, end: 20120522
  6. EMTRIVA [Suspect]
     Active Substance: EMTRICITABINE
     Indication: HIV-2 infection
     Dosage: 1 DF, QD (UNK, QD)
     Route: 065
     Dates: start: 20160909, end: 20170302
  7. ISENTRESS [Suspect]
     Active Substance: RALTEGRAVIR POTASSIUM
     Indication: HIV-2 infection
     Dosage: UNK, QD
     Route: 065
     Dates: start: 20120522, end: 20120702
  8. ISENTRESS [Suspect]
     Active Substance: RALTEGRAVIR POTASSIUM
     Indication: HIV-2 infection
     Dosage: START DATE SEP 2012 UNK, QD
     Route: 065
     Dates: end: 20140408
  9. INVIRASE [Suspect]
     Active Substance: SAQUINAVIR MESYLATE
     Indication: HIV-2 infection
     Dosage: UNK, QD
     Route: 065
     Dates: start: 20120702
  10. VIREAD [Suspect]
     Active Substance: TENOFOVIR DISOPROXIL FUMARATE
     Indication: Hepatitis B
     Dosage: 1 DF, QD (1 DOSAGE FORM, QD)
     Route: 065
     Dates: start: 20060627, end: 20170302
  11. DOLUTEGRAVIR [Suspect]
     Active Substance: DOLUTEGRAVIR
     Indication: HIV-2 infection
     Dosage: UNK, QD
     Route: 065
     Dates: start: 20140408, end: 20170302
  12. ABACAVIR SULFATE\LAMIVUDINE [Suspect]
     Active Substance: ABACAVIR SULFATE\LAMIVUDINE
     Indication: HIV-2 infection
     Dosage: UNK, QD
     Route: 065
     Dates: start: 20120522, end: 20160909
  13. ESOMEPRAZOLE [Concomitant]
     Active Substance: ESOMEPRAZOLE
     Indication: Product used for unknown indication
     Dosage: UNK
     Route: 065
  14. ESOMEPRAZOLE [Concomitant]
     Active Substance: ESOMEPRAZOLE
     Indication: Product used for unknown indication
     Dosage: UNK
     Route: 065
  15. ZOLPIDEM [Concomitant]
     Active Substance: ZOLPIDEM TARTRATE
     Indication: Product used for unknown indication
     Dosage: UNK
     Route: 065
  16. ZOLPIDEM [Concomitant]
     Active Substance: ZOLPIDEM TARTRATE
     Indication: Product used for unknown indication
     Dosage: UNK
     Route: 065
  17. ATAZANAVIR [Concomitant]
     Active Substance: ATAZANAVIR
     Indication: Product used for unknown indication
     Dosage: UNK
  18. ATAZANAVIR [Concomitant]
     Active Substance: ATAZANAVIR
     Indication: Product used for unknown indication
     Dosage: UNK
     Route: 065
  19. COTRIMOXAZOLE [Concomitant]
     Active Substance: SULFAMETHOXAZOLE\TRIMETHOPRIM
     Indication: Product used for unknown indication
     Dosage: UNK
     Route: 065
  20. COTRIMOXAZOLE [Concomitant]
     Active Substance: SULFAMETHOXAZOLE\TRIMETHOPRIM
     Indication: Product used for unknown indication
     Dosage: UNK
     Route: 065

REACTIONS (7)
  - Death [Fatal]
  - Hepatitis B DNA increased [Recovered/Resolved]
  - Blood HIV RNA increased [Not Recovered/Not Resolved]
  - Pruritus [Unknown]
  - Genotype drug resistance test positive [Not Recovered/Not Resolved]
  - Dyspepsia [Unknown]
  - Drug ineffective [Not Recovered/Not Resolved]

NARRATIVE: CASE EVENT DATE: 20111114
